FAERS Safety Report 9200226 (Version 1)
Quarter: 2013Q1

REPORT INFORMATION
  Report Type: Report from Study
  Country: DE (occurrence: DE)
  Receive Date: 20130329
  Receipt Date: 20130329
  Transmission Date: 20140127
  Serious: Yes (Congenital Anomaly, Other)
  Sender: FDA-Public Use
  Company Number: DE-PFIZER INC-2013098885

PATIENT
  Sex: Male

DRUGS (8)
  1. RAMIPRIL [Suspect]
     Dosage: UNK
     Route: 064
  2. CANDESARTAN [Suspect]
     Indication: HYPERTENSION
     Dosage: 8 MG, DAILY
     Route: 064
  3. HYDROCHLOROTHIAZIDE [Suspect]
     Dosage: UNK
     Route: 064
  4. TORASEMIDE [Suspect]
     Dosage: UNK
     Route: 064
  5. PREDNISONE [Suspect]
     Dosage: UNK
     Route: 064
  6. ESOMEPRAZOLE [Suspect]
     Dosage: UNK
     Route: 064
  7. MYCOPHENOLATE MOFETIL [Suspect]
     Indication: SYSTEMIC LUPUS ERYTHEMATOSUS
     Dosage: UNK
     Route: 064
  8. CYCLOPHOSPHAMIDE [Suspect]
     Indication: SYSTEMIC LUPUS ERYTHEMATOSUS
     Dosage: UNK
     Route: 064

REACTIONS (13)
  - Maternal exposure during pregnancy [Unknown]
  - Premature baby [Unknown]
  - Ultrasound kidney abnormal [Unknown]
  - Joint contracture [Unknown]
  - Blood creatinine increased [Recovered/Resolved]
  - Arterial disorder [Unknown]
  - Ventricular septal defect [Unknown]
  - Atrial septal defect [Unknown]
  - Patent ductus arteriosus [Unknown]
  - Mitral valve incompetence [Unknown]
  - Inguinal hernia [Unknown]
  - Hydrocele [Unknown]
  - Neonatal respiratory distress syndrome [Unknown]
